FAERS Safety Report 16148712 (Version 1)
Quarter: 2019Q2

REPORT INFORMATION
  Report Type: Spontaneous
  Country: US (occurrence: US)
  Receive Date: 20190402
  Receipt Date: 20190402
  Transmission Date: 20190711
  Serious: Yes (Hospitalization)
  Sender: FDA-Public Use
  Company Number: US-JNJFOC-20190336935

PATIENT
  Age: 32 Year
  Sex: Male
  Weight: 56.2 kg

DRUGS (1)
  1. EDURANT [Suspect]
     Active Substance: RILPIVIRINE HYDROCHLORIDE
     Indication: HIV INFECTION
     Route: 048

REACTIONS (3)
  - Aggression [Unknown]
  - Jaw fracture [Unknown]
  - Fistula [Unknown]

NARRATIVE: CASE EVENT DATE: 20190318
